FAERS Safety Report 13254627 (Version 1)
Quarter: 2017Q1

REPORT INFORMATION
  Report Type: Spontaneous
  Country: US (occurrence: US)
  Receive Date: 20170221
  Receipt Date: 20170221
  Transmission Date: 20170428
  Serious: No
  Sender: FDA-Public Use
  Company Number: US-TEVA-730237USA

PATIENT
  Age: 29 Year
  Sex: Female
  Weight: 80.81 kg

DRUGS (1)
  1. SEASONIQUE [Suspect]
     Active Substance: ETHINYL ESTRADIOL\LEVONORGESTREL
     Indication: CONTRACEPTION
     Dates: start: 20170101

REACTIONS (2)
  - Vaginal haemorrhage [Not Recovered/Not Resolved]
  - Drug dose omission [Recovered/Resolved]

NARRATIVE: CASE EVENT DATE: 20170106
